FAERS Safety Report 8816221 (Version 1)
Quarter: 2012Q4

REPORT INFORMATION
  Report Type: 
  Country: US (occurrence: US)
  Receive Date: 20120930
  Receipt Date: 20120930
  Transmission Date: 20130627
  Serious: Yes (Hospitalization, Other)
  Sender: FDA-Public Use
  Company Number: US-ELI_LILLY_AND_COMPANY-US201209005244

PATIENT
  Age: 56 Year
  Sex: Male

DRUGS (9)
  1. CYMBALTA [Suspect]
     Indication: ALCOHOLISM
     Dosage: 30 mg, bid
  2. LIPITOR [Concomitant]
  3. VERAPAMIL [Concomitant]
  4. TRICOR [Concomitant]
  5. VYTORIN [Concomitant]
  6. METOPROLOL [Concomitant]
  7. LISINOPRIL [Concomitant]
  8. MAGNESIUM OXIDE [Concomitant]
  9. MULTIVITAMIN [Concomitant]

REACTIONS (9)
  - Myocardial infarction [Unknown]
  - Cardiomyopathy alcoholic [Unknown]
  - Loss of consciousness [Unknown]
  - Hepatic enzyme increased [Recovered/Resolved]
  - Erectile dysfunction [Unknown]
  - Asthenia [Unknown]
  - Dizziness [Unknown]
  - Hypotension [Recovering/Resolving]
  - Off label use [Not Recovered/Not Resolved]
